FAERS Safety Report 10072121 (Version 1)
Quarter: 2014Q2

REPORT INFORMATION
  Report Type: Spontaneous
  Country: GB (occurrence: GB)
  Receive Date: 20140411
  Receipt Date: 20140411
  Transmission Date: 20141212
  Serious: Yes (Other)
  Sender: FDA-Public Use
  Company Number: GB-ASTRAZENECA-2014SE23796

PATIENT
  Sex: Female

DRUGS (7)
  1. OMEPRAZOLE [Suspect]
     Route: 048
     Dates: start: 20130731
  2. OMEPRAZOLE [Suspect]
     Dosage: ACTAVIS OMEPRAZOLE
     Route: 048
  3. BENDROFLUMETHIAZIDE [Concomitant]
  4. CLENIL MODULITE [Concomitant]
     Route: 045
  5. GAVISCON [Concomitant]
  6. PARACETAMOL [Concomitant]
  7. VENTOLIN [Concomitant]
     Route: 055

REACTIONS (2)
  - Asthma [Unknown]
  - Gastrooesophageal reflux disease [Unknown]
